FAERS Safety Report 4715337-6 (Version None)
Quarter: 2005Q3

REPORT INFORMATION
  Report Type: 
  Country: None (occurrence: None)
  Receive Date: 20050715
  Receipt Date: 20050708
  Transmission Date: 20060218
  Serious: Yes (Hospitalization)
  Sender: FDA-Public Use
  Company Number: US-MERCK-0507USA01362

PATIENT
  Age: 76 Year
  Sex: Female

DRUGS (1)
  1. FOSAMAX [Suspect]
     Route: 048
     Dates: start: 20010101

REACTIONS (3)
  - BLOOD CALCIUM INCREASED [None]
  - CHEST PAIN [None]
  - WRONG TECHNIQUE IN DRUG USAGE PROCESS [None]
